FAERS Safety Report 24358425 (Version 1)
Quarter: 2024Q3

REPORT INFORMATION
  Report Type: Spontaneous
  Country: US (occurrence: None)
  Receive Date: 20240924
  Receipt Date: 20240924
  Transmission Date: 20241016
  Serious: Yes (Other)
  Sender: Public
  Company Number: None

PATIENT
  Age: 60 Year
  Sex: Male
  Weight: 126 kg

DRUGS (1)
  1. APRETUDE [Suspect]
     Active Substance: CABOTEGRAVIR
     Dosage: OTHER FREQUENCY : EVERY 60 DAYS;?
     Route: 030
     Dates: start: 20221020

REACTIONS (3)
  - Sleep terror [None]
  - Rash erythematous [None]
  - Rash pruritic [None]

NARRATIVE: CASE EVENT DATE: 20240914
